FAERS Safety Report 7125887-3 (Version None)
Quarter: 2010Q4

REPORT INFORMATION
  Report Type: 
  Country: None (occurrence: None)
  Receive Date: 20101129
  Receipt Date: 20101117
  Transmission Date: 20110411
  Serious: No
  Sender: FDA-Public Use
  Company Number: JP-JNJFOC-20101104217

PATIENT
  Age: 93 Year
  Sex: Female

DRUGS (4)
  1. DUROTEP MT [Suspect]
     Indication: PAIN IN EXTREMITY
     Route: 062
  2. DUROTEP MT [Suspect]
     Route: 062
  3. DUROTEP MT [Suspect]
     Route: 062
  4. DICLOFENAC SODIUM [Concomitant]
     Indication: PAIN
     Route: 061

REACTIONS (3)
  - DECREASED APPETITE [None]
  - INCORRECT DRUG ADMINISTRATION DURATION [None]
  - SOMNOLENCE [None]
